FAERS Safety Report 26107194 (Version 1)
Quarter: 2025Q4

REPORT INFORMATION
  Report Type: Spontaneous
  Country: NP (occurrence: NP)
  Receive Date: 20251201
  Receipt Date: 20251201
  Transmission Date: 20260118
  Serious: Yes (Life-Threatening, Hospitalization)
  Sender: BAYER HEALTHCARE PHARMACEUTICALS INC.
  Company Number: NP-MLMSERVICE-20251117-PI714086-00032-1

PATIENT
  Age: 24 Year
  Sex: Male
  Weight: 68 kg

DRUGS (1)
  1. ACARBOSE [Suspect]
     Active Substance: ACARBOSE
     Dosage: 21 TABLETS OF 25 MG ACARBOSE, TOTALING A DOSE OF 525 MG.
     Route: 048

REACTIONS (4)
  - Hypoglycaemia [Recovered/Resolved]
  - Renal impairment [Unknown]
  - Intentional overdose [Unknown]
  - Gastrointestinal disorder [Recovered/Resolved]
